FAERS Safety Report 6758520-0 (Version None)
Quarter: 2010Q2

REPORT INFORMATION
  Report Type: 
  Country: None (occurrence: None)
  Receive Date: 20100607
  Receipt Date: 20100528
  Transmission Date: 20101027
  Serious: Yes (Hospitalization)
  Sender: FDA-Public Use
  Company Number: B0649255A

PATIENT
  Sex: Female

DRUGS (6)
  1. PAXIL [Suspect]
     Indication: DEPRESSION
     Dosage: 40MG PER DAY
     Route: 048
     Dates: start: 20100315, end: 20100419
  2. DOGMATYL [Suspect]
     Indication: DRUG USE FOR UNKNOWN INDICATION
  3. BONALON [Suspect]
     Indication: DRUG USE FOR UNKNOWN INDICATION
     Route: 048
  4. RABEPRAZOLE SODIUM [Suspect]
     Dosage: 20MG PER DAY
     Route: 048
     Dates: end: 20100419
  5. MYSLEE [Suspect]
     Indication: DRUG USE FOR UNKNOWN INDICATION
     Route: 048
  6. MEILAX [Suspect]
     Indication: DRUG USE FOR UNKNOWN INDICATION
     Route: 048

REACTIONS (7)
  - HAEMATOCRIT DECREASED [None]
  - HAEMOGLOBIN DECREASED [None]
  - INTERSTITIAL LUNG DISEASE [None]
  - PLATELET COUNT INCREASED [None]
  - PNEUMONIA [None]
  - RED BLOOD CELL COUNT DECREASED [None]
  - WHITE BLOOD CELL COUNT INCREASED [None]
